FAERS Safety Report 4730384-6 (Version None)
Quarter: 2005Q3

REPORT INFORMATION
  Report Type: 
  Country: None (occurrence: None)
  Receive Date: 20050729
  Receipt Date: 20050729
  Transmission Date: 20060218
  Serious: Yes (Disabling)
  Sender: FDA-Public Use
  Company Number: None

PATIENT
  Age: 57 Year
  Sex: Female
  Weight: 61.2356 kg

DRUGS (1)
  1. DEPO-PROVERA [Suspect]
     Indication: SCIATICA

REACTIONS (3)
  - ARACHNOIDITIS [None]
  - IMPAIRED WORK ABILITY [None]
  - PAIN [None]
